FAERS Safety Report 7054693-3 (Version None)
Quarter: 2010Q4

REPORT INFORMATION
  Report Type: 
  Country: None (occurrence: None)
  Receive Date: 20101015
  Receipt Date: 20101004
  Transmission Date: 20110411
  Serious: Yes (Other)
  Sender: FDA-Public Use
  Company Number: AXC-2010-000261

PATIENT
  Age: 80 Year
  Sex: Female

DRUGS (1)
  1. AQUADEKS (MULTIVITAMINS) CAPSULE [Suspect]
     Indication: COLITIS COLLAGENOUS
     Dosage: ORAL
     Route: 048
     Dates: start: 20100901, end: 20100101

REACTIONS (2)
  - BRONCHITIS [None]
  - BRONCHOSPASM [None]
